FAERS Safety Report 9629616 (Version 1)
Quarter: 2013Q4

REPORT INFORMATION
  Report Type: Report from Study
  Country: US (occurrence: US)
  Receive Date: 20131017
  Receipt Date: 20131017
  Transmission Date: 20140711
  Serious: Yes (Death)
  Sender: FDA-Public Use
  Company Number: US-ROCHE-1288965

PATIENT
  Age: 53 Year
  Sex: Female

DRUGS (13)
  1. AVASTIN [Suspect]
     Indication: OVARIAN CANCER
     Dosage: WASTE 55 MG
     Route: 065
     Dates: start: 20121002
  2. AVASTIN [Suspect]
     Route: 065
     Dates: start: 20121016
  3. AVASTIN [Suspect]
     Route: 065
     Dates: start: 20121030
  4. AVASTIN [Suspect]
     Route: 065
     Dates: start: 20121113
  5. AVASTIN [Suspect]
     Route: 065
     Dates: start: 20121128
  6. ALOXI [Concomitant]
     Route: 065
     Dates: start: 20121002
  7. ALOXI [Concomitant]
     Route: 065
     Dates: start: 20121030
  8. ALOXI [Concomitant]
     Route: 065
     Dates: start: 20121128
  9. DECADRON [Concomitant]
     Route: 065
     Dates: start: 20121113
  10. DOXIL (UNITED STATES) [Concomitant]
     Route: 065
     Dates: start: 20121002
  11. DOXIL (UNITED STATES) [Concomitant]
     Route: 065
     Dates: start: 20121030
  12. DOXIL (UNITED STATES) [Concomitant]
     Route: 065
     Dates: start: 20121128
  13. KYTRIL [Concomitant]
     Route: 065
     Dates: start: 20121113

REACTIONS (11)
  - Death [Fatal]
  - Ascites [Unknown]
  - Abdominal distension [Not Recovered/Not Resolved]
  - Abdominal tenderness [Unknown]
  - Abdominal pain [Unknown]
  - Pain [Unknown]
  - Oedema peripheral [Unknown]
  - Malignant ascites [Unknown]
  - Nausea [Unknown]
  - Dyspepsia [Unknown]
  - Orthopnoea [Unknown]
